FAERS Safety Report 10600904 (Version 1)
Quarter: 2014Q4

REPORT INFORMATION
  Report Type: Spontaneous
  Country: US (occurrence: None)
  Receive Date: 20141120
  Receipt Date: 20141120
  Transmission Date: 20150529
  Serious: Yes (Hospitalization, Other)
  Sender: FDA-Public Use
  Company Number: 2014-US-014944

PATIENT
  Age: 51 Year
  Sex: Female
  Weight: 81.2 kg

DRUGS (2)
  1. GABAPENTIN (GABAPENTIN) [Concomitant]
     Active Substance: GABAPENTIN
  2. XYREM [Suspect]
     Active Substance: SODIUM OXYBATE
     Indication: SOMNOLENCE
     Dosage: 2.25 G, BID, ORAL
     Route: 048
     Dates: start: 201204

REACTIONS (4)
  - Migraine [None]
  - Headache [None]
  - Depression [None]
  - Off label use [None]

NARRATIVE: CASE EVENT DATE: 201410
